FAERS Safety Report 20889364 (Version 3)
Quarter: 2022Q3

REPORT INFORMATION
  Report Type: Spontaneous
  Country: US (occurrence: US)
  Receive Date: 20220530
  Receipt Date: 20220831
  Transmission Date: 20221026
  Serious: Yes (Other)
  Sender: FDA-Public Use
  Company Number: US-Calliditas-2022CAL00086

PATIENT
  Age: 53 Year
  Sex: Female

DRUGS (6)
  1. TARPEYO [Suspect]
     Active Substance: BUDESONIDE
     Indication: IgA nephropathy
     Dosage: 8 MG (4 MG CAPSULES) DAILY
     Route: 050
     Dates: start: 20220505
  2. DULOXETINE [Concomitant]
     Active Substance: DULOXETINE
  3. LEVOTHYROXINE [Concomitant]
     Active Substance: LEVOTHYROXINE
  4. LISINOPRIL [Concomitant]
     Active Substance: LISINOPRIL
  5. TIZANIDINE [Concomitant]
     Active Substance: TIZANIDINE
  6. AMBIEN [Concomitant]
     Active Substance: ZOLPIDEM TARTRATE

REACTIONS (6)
  - Multiple sclerosis relapse [Not Recovered/Not Resolved]
  - Prescribed underdose [Not Recovered/Not Resolved]
  - Fall [Not Recovered/Not Resolved]
  - Gait inability [Not Recovered/Not Resolved]
  - Balance disorder [Not Recovered/Not Resolved]
  - Arthralgia [Not Recovered/Not Resolved]

NARRATIVE: CASE EVENT DATE: 20220401
